FAERS Safety Report 5916704-5 (Version None)
Quarter: 2008Q4

REPORT INFORMATION
  Report Type: 
  Country: None (occurrence: None)
  Receive Date: 20081013
  Receipt Date: 20081008
  Transmission Date: 20090506
  Serious: Yes (Hospitalization)
  Sender: FDA-Public Use
  Company Number: US-WYE-H04953508

PATIENT
  Age: 17 Year
  Sex: Female
  Weight: 56.75 kg

DRUGS (4)
  1. LYBREL [Suspect]
     Indication: ENDOMETRIOSIS
     Route: 048
     Dates: start: 20071001, end: 20080216
  2. LYBREL [Suspect]
     Route: 048
     Dates: start: 20080501
  3. ALBUTEROL [Concomitant]
     Indication: ASTHMA
     Dosage: PRN, APPROXIMATELY ONCE MONTHLY
     Route: 055
  4. ADVAIR DISKUS 100/50 [Concomitant]
     Indication: ASTHMA
     Dosage: 50/100 BID
     Route: 065

REACTIONS (5)
  - CONDITION AGGRAVATED [None]
  - CONVERSION DISORDER [None]
  - EPISTAXIS [None]
  - MIGRAINE [None]
  - SINUS DISORDER [None]
